FAERS Safety Report 8393754-3 (Version None)
Quarter: 2012Q2

REPORT INFORMATION
  Report Type: 
  Country: None (occurrence: None)
  Receive Date: 20120530
  Receipt Date: 20120524
  Transmission Date: 20120825
  Serious: No
  Sender: FDA-Public Use
  Company Number: US-BIOGENIDEC-2012BI018453

PATIENT
  Age: 35 Year
  Sex: Female

DRUGS (1)
  1. TYSABRI [Suspect]
     Indication: MULTIPLE SCLEROSIS
     Route: 042
     Dates: start: 20120521

REACTIONS (7)
  - FEELING ABNORMAL [None]
  - PARAESTHESIA [None]
  - HYPERSENSITIVITY [None]
  - BACK PAIN [None]
  - GAIT DISTURBANCE [None]
  - SENSORY DISTURBANCE [None]
  - DIZZINESS [None]
